FAERS Safety Report 6278262-8 (Version None)
Quarter: 2009Q3

REPORT INFORMATION
  Report Type: 
  Country: None (occurrence: None)
  Receive Date: 20090722
  Receipt Date: 20080703
  Transmission Date: 20100115
  Serious: Yes (Other)
  Sender: FDA-Public Use
  Company Number: CH-AVENTIS-200816403GDDC

PATIENT
  Age: 46 Year
  Sex: Female

DRUGS (3)
  1. ARAVA [Suspect]
     Indication: PSORIATIC ARTHROPATHY
     Route: 048
     Dates: start: 20080125, end: 20080202
  2. OLFEN-75 [Suspect]
     Indication: PSORIATIC ARTHROPATHY
     Route: 048
  3. QUANTALAN [Concomitant]
     Dosage: DOSE: UNK
     Route: 048
     Dates: start: 20080316, end: 20080320

REACTIONS (2)
  - ABORTION SPONTANEOUS [None]
  - DRUG EXPOSURE DURING PREGNANCY [None]
